FAERS Safety Report 9473977 (Version 2)
Quarter: 2013Q3

REPORT INFORMATION
  Report Type: Spontaneous
  Country: DE (occurrence: DE)
  Receive Date: 20130823
  Receipt Date: 20130912
  Transmission Date: 20140515
  Serious: Yes (Death, Life-Threatening, Other)
  Sender: FDA-Public Use
  Company Number: DE-JNJFOC-20130809590

PATIENT
  Age: 93 Year
  Sex: Female

DRUGS (10)
  1. RISPERDAL [Suspect]
     Indication: PRODUCT USED FOR UNKNOWN INDICATION
     Route: 048
     Dates: start: 20020816, end: 20020902
  2. EUNERPAN [Suspect]
     Indication: PRODUCT USED FOR UNKNOWN INDICATION
     Route: 065
     Dates: start: 20020816, end: 20020902
  3. AMARYL [Concomitant]
     Indication: DIABETES MELLITUS
     Route: 048
     Dates: end: 20020902
  4. CIPRAMIL [Concomitant]
     Route: 048
     Dates: end: 20020902
  5. DELIX [Concomitant]
     Route: 048
     Dates: end: 20020902
  6. BELOC - ZOK [Concomitant]
     Route: 048
     Dates: end: 20020902
  7. CALCIUM [Concomitant]
     Route: 065
     Dates: end: 20020902
  8. NOVAMINSULFON [Concomitant]
     Route: 048
     Dates: end: 20020902
  9. FRAGMIN [Concomitant]
     Route: 058
     Dates: start: 20020816, end: 20020902
  10. ACETYL SALICYLIC ACID [Concomitant]
     Route: 048
     Dates: end: 20020902

REACTIONS (2)
  - Pneumonia [Fatal]
  - Cardiac failure [Fatal]
